FAERS Safety Report 7417845-6 (Version None)
Quarter: 2011Q2

REPORT INFORMATION
  Report Type: 
  Country: None (occurrence: None)
  Receive Date: 20110406
  Receipt Date: 20110325
  Transmission Date: 20111010
  Serious: Yes (Life-Threatening, Hospitalization)
  Sender: FDA-Public Use
  Company Number: 2011MA001898

PATIENT
  Age: 76 Year
  Sex: Male

DRUGS (12)
  1. METFORMIN [Concomitant]
  2. IRINOTECAN HYDROCHLORIDE [Suspect]
     Indication: COLON CANCER STAGE IV
     Dosage: 620 MG; IV
     Route: 042
     Dates: start: 20110111, end: 20110111
  3. BISOPROLOL [Concomitant]
  4. FERROUS SULFATE TAB [Concomitant]
  5. ONDANSETRON [Suspect]
     Indication: PROPHYLAXIS OF NAUSEA AND VOMITING
     Dosage: 8 MG;IV
     Route: 042
     Dates: start: 20110111, end: 20110111
  6. IRBESARTAN [Concomitant]
  7. DEXAMETHASONE [Suspect]
     Indication: PROPHYLAXIS OF NAUSEA AND VOMITING
     Dosage: 8 MG; PO
     Route: 048
     Dates: start: 20110111, end: 20110113
  8. AMLODIPINE [Concomitant]
  9. ISOSORBIDE MONONITRATE [Concomitant]
  10. PRAVASTATIN [Concomitant]
  11. GLICLAZIDE [Concomitant]
  12. ACETYLSALICYLIC ACID SRT [Concomitant]

REACTIONS (3)
  - DIARRHOEA [None]
  - CHEST DISCOMFORT [None]
  - VOMITING [None]
